FAERS Safety Report 23873895 (Version 2)
Quarter: 2024Q2

REPORT INFORMATION
  Report Type: Other
  Country: IT (occurrence: None)
  Receive Date: 20240520
  Receipt Date: 20240612
  Transmission Date: 20240715
  Serious: Yes (Hospitalization)
  Sender: FDA-Public Use
  Company Number: IT-ROCHE-3565845

PATIENT
  Age: 50 Year
  Sex: Male

DRUGS (5)
  1. OBINUTUZUMAB [Suspect]
     Active Substance: OBINUTUZUMAB
     Indication: Transplant rejection
     Route: 042
  2. MYFENAX [Suspect]
     Active Substance: MYCOPHENOLATE MOFETIL
     Indication: Prophylaxis against transplant rejection
     Route: 065
  3. ECULIZUMAB [Concomitant]
     Active Substance: ECULIZUMAB
     Route: 042
  4. METHYLPREDNISOLONE [Concomitant]
     Active Substance: METHYLPREDNISOLONE
     Dosage: FOR 4 DAYS
     Route: 042
  5. TACROLIMUS [Concomitant]
     Active Substance: TACROLIMUS
     Dosage: ADJUSTED TO ACHIEVE A TROUGH LEVEL OF 12-15 NG/ML DURING THE FIRST MONTH (10-12 NG/ML THEREAFTER)
     Route: 048

REACTIONS (7)
  - Organising pneumonia [Unknown]
  - Off label use [Unknown]
  - Nausea [Recovered/Resolved]
  - Tachycardia [Unknown]
  - Cytomegalovirus viraemia [Unknown]
  - COVID-19 [Unknown]
  - Leukopenia [Unknown]
